FAERS Safety Report 6687958-5 (Version None)
Quarter: 2010Q2

REPORT INFORMATION
  Report Type: 
  Country: None (occurrence: None)
  Receive Date: 20100420
  Receipt Date: 20100409
  Transmission Date: 20101027
  Serious: Yes (Hospitalization)
  Sender: FDA-Public Use
  Company Number: US-JNJFOC-20100403061

PATIENT
  Sex: Female
  Weight: 52.62 kg

DRUGS (15)
  1. DURAGESIC-100 [Suspect]
     Indication: BACK PAIN
     Route: 062
  2. DURAGESIC-100 [Suspect]
     Dosage: NDC# 50458009205
     Route: 062
  3. DEMEROL [Suspect]
     Indication: PAIN
     Route: 030
  4. DILANTIN [Suspect]
     Indication: DRUG USE FOR UNKNOWN INDICATION
     Route: 048
  5. COQ10 [Suspect]
     Indication: MIGRAINE
     Route: 048
  6. PROTONIX [Suspect]
     Indication: DYSPEPSIA
     Route: 048
  7. ACETYLSALICYLIC ACID [Suspect]
     Indication: CARDIAC DISORDER
     Route: 048
  8. VERAPAMIL [Concomitant]
     Indication: HYPERTENSION
     Route: 048
  9. INDERAL [Concomitant]
     Indication: HYPERTENSION
     Route: 048
  10. CALCIUM [Concomitant]
     Indication: MINERAL SUPPLEMENTATION
     Route: 048
  11. VITAMIN D [Concomitant]
     Indication: MINERAL SUPPLEMENTATION
     Route: 048
  12. LORAZEPAM [Concomitant]
     Indication: ANXIETY
     Route: 048
  13. COLACE [Concomitant]
     Indication: LAXATIVE SUPPORTIVE CARE
     Route: 048
  14. LEVOTHYROXINE [Concomitant]
     Indication: THYROID DISORDER
     Route: 048
  15. TYLENOL-500 [Concomitant]
     Indication: PAIN
     Route: 048

REACTIONS (7)
  - DRUG ADMINISTERED AT INAPPROPRIATE SITE [None]
  - FALL [None]
  - HYPERSENSITIVITY [None]
  - JOINT INJURY [None]
  - SWELLING [None]
  - UPPER LIMB FRACTURE [None]
  - WEIGHT DECREASED [None]
